FAERS Safety Report 5823844-8 (Version None)
Quarter: 2008Q3

REPORT INFORMATION
  Report Type: 
  Country: None (occurrence: None)
  Receive Date: 20080725
  Receipt Date: 20080716
  Transmission Date: 20090109
  Serious: Yes (Other)
  Sender: FDA-Public Use
  Company Number: BR-PFIZER INC-2008060194

PATIENT
  Sex: Male
  Weight: 84 kg

DRUGS (3)
  1. VIAGRA [Suspect]
     Indication: ERECTILE DYSFUNCTION
     Route: 048
  2. DIOVAN [Concomitant]
  3. MODURETIC 5-50 [Concomitant]

REACTIONS (5)
  - ALLERGIC COUGH [None]
  - EPISTAXIS [None]
  - ERYTHEMA [None]
  - FEELING HOT [None]
  - VARICOSE VEIN [None]
